FAERS Safety Report 20198046 (Version 1)
Quarter: 2021Q4

REPORT INFORMATION
  Report Type: Spontaneous
  Country: US (occurrence: US)
  Receive Date: 20211217
  Receipt Date: 20211217
  Transmission Date: 20220303
  Serious: Yes (Other)
  Sender: FDA-Public Use
  Company Number: US-STRIDES ARCOLAB LIMITED-2021SP031163

PATIENT

DRUGS (2)
  1. RANITIDINE [Suspect]
     Active Substance: RANITIDINE
     Indication: Product used for unknown indication
     Dosage: UNK,RANITIDINE
     Route: 065
     Dates: start: 1998, end: 2020
  2. RANITIDINE [Suspect]
     Active Substance: RANITIDINE
     Dosage: UNK,ZANTAC
     Route: 065
     Dates: start: 1998, end: 2020

REACTIONS (1)
  - Lung neoplasm malignant [Unknown]

NARRATIVE: CASE EVENT DATE: 20200801
